FAERS Safety Report 5400224-0 (Version None)
Quarter: 2007Q3

REPORT INFORMATION
  Report Type: 
  Country: None (occurrence: None)
  Receive Date: 20070725
  Receipt Date: 20070711
  Transmission Date: 20080115
  Serious: Yes (Hospitalization, Other)
  Sender: FDA-Public Use
  Company Number: 158722ISR

PATIENT
  Age: 71 Year
  Sex: Female

DRUGS (2)
  1. CISPLATIN [Suspect]
     Indication: OESOPHAGEAL ADENOCARCINOMA
     Dosage: (SEE IMAGE
     Route: 042
     Dates: start: 20070508, end: 20070508
  2. CISPLATIN [Suspect]
     Indication: OESOPHAGEAL ADENOCARCINOMA
     Dosage: (SEE IMAGE
     Route: 042
     Dates: start: 20070604, end: 20070604

REACTIONS (3)
  - AORTIC THROMBOSIS [None]
  - RENAL INFARCT [None]
  - SPLENIC INFARCTION [None]
